FAERS Safety Report 9689801 (Version 1)
Quarter: 2013Q4

REPORT INFORMATION
  Report Type: Spontaneous
  Country: IT (occurrence: IT)
  Receive Date: 20131115
  Receipt Date: 20131115
  Transmission Date: 20140711
  Serious: Yes (Hospitalization)
  Sender: FDA-Public Use
  Company Number: IT-BRISTOL-MYERS SQUIBB COMPANY-19796598

PATIENT
  Age: 86 Year
  Sex: Male

DRUGS (9)
  1. COUMADIN TABS 5 MG [Suspect]
     Indication: ATRIAL FIBRILLATION
     Dosage: 1 DF: 0.5 DOSAGE UNIT
     Route: 048
     Dates: start: 20130101, end: 20131011
  2. SIMVASTATIN [Concomitant]
     Route: 048
  3. BISOPROLOL FUMARATE [Concomitant]
     Route: 048
  4. FINASTERIDE [Concomitant]
     Route: 048
  5. LANSOPRAZOLE [Concomitant]
     Route: 048
  6. ALLOPURINOL [Concomitant]
     Route: 048
  7. VALSARTAN [Concomitant]
     Route: 048
  8. FUROSEMIDE [Concomitant]
     Route: 048
  9. SINEMET [Concomitant]
     Dosage: ^100 MG/25 MG TABLETS^?1 DF:  UNITS
     Route: 046

REACTIONS (4)
  - Gastric haemorrhage [Unknown]
  - Rectal haemorrhage [Unknown]
  - Oesophageal ulcer [Unknown]
  - Urethritis [Unknown]
